FAERS Safety Report 8414724-2 (Version None)
Quarter: 2012Q2

REPORT INFORMATION
  Report Type: 
  Country: None (occurrence: None)
  Receive Date: 20120605
  Receipt Date: 20120529
  Transmission Date: 20120825
  Serious: Yes (Other)
  Sender: FDA-Public Use
  Company Number: US-GILEAD-2012-0055864

PATIENT
  Sex: Female

DRUGS (2)
  1. ATRIPLA [Suspect]
     Indication: HIV INFECTION
  2. COMPLERA [Suspect]
     Indication: HIV INFECTION

REACTIONS (2)
  - VIROLOGIC FAILURE [None]
  - UNEVALUABLE EVENT [None]
